FAERS Safety Report 9354505 (Version 2)
Quarter: 2013Q3

REPORT INFORMATION
  Report Type: Spontaneous
  Country: BE (occurrence: BE)
  Receive Date: 20130618
  Receipt Date: 20130813
  Transmission Date: 20140515
  Serious: Yes (Hospitalization, Disabling, Other)
  Sender: FDA-Public Use
  Company Number: BE-009507513-1306BEL007268

PATIENT
  Age: 75 Year
  Sex: Male
  Weight: 108 kg

DRUGS (1)
  1. JANUVIA [Suspect]
     Indication: DIABETES MELLITUS
     Dosage: TOTAL DAILY DOSE 100MG
     Route: 048
     Dates: start: 201205, end: 201304

REACTIONS (2)
  - Pancreatic carcinoma [Not Recovered/Not Resolved]
  - Pancreatectomy [Unknown]
